FAERS Safety Report 6979536-5 (Version None)
Quarter: 2010Q3

REPORT INFORMATION
  Report Type: 
  Country: None (occurrence: None)
  Receive Date: 20100913
  Receipt Date: 20100901
  Transmission Date: 20110219
  Serious: Yes (Other)
  Sender: FDA-Public Use
  Company Number: PHHY2010US24147

PATIENT
  Sex: Female

DRUGS (5)
  1. EXTAVIA [Suspect]
     Indication: MULTIPLE SCLEROSIS
     Dosage: 0.25 MG, QOD
     Route: 058
     Dates: start: 20100304
  2. TOPIRAMATE [Concomitant]
     Indication: MIGRAINE
     Dosage: 25 MG 2 TABLETS, BID
     Route: 048
     Dates: start: 20100601
  3. ROPINIROLE [Concomitant]
     Indication: RESTLESS LEGS SYNDROME
     Dosage: 0.25 MG, TID
     Route: 048
     Dates: start: 20100726
  4. TRAMADOL HCL [Concomitant]
     Indication: PAIN
     Dosage: 50 MG, 1-2 TABLETS
     Dates: start: 20100830
  5. PREDNISONE [Concomitant]
     Indication: OPTIC NEURITIS
     Dosage: TAPER, UNK
     Route: 048
     Dates: start: 20100801

REACTIONS (8)
  - DRY SKIN [None]
  - HEPATIC ENZYME INCREASED [None]
  - INJECTION SITE ERYTHEMA [None]
  - INJECTION SITE INJURY [None]
  - INJECTION SITE PRURITUS [None]
  - INJECTION SITE REACTION [None]
  - INJECTION SITE URTICARIA [None]
  - SKIN EXFOLIATION [None]
